FAERS Safety Report 4832615-0 (Version None)
Quarter: 2005Q4

REPORT INFORMATION
  Report Type: 
  Country: None (occurrence: None)
  Receive Date: 20051121
  Receipt Date: 20051109
  Transmission Date: 20060501
  Serious: Yes (Other)
  Sender: FDA-Public Use
  Company Number: US-JNJFOC-20051102899

PATIENT
  Sex: Female

DRUGS (14)
  1. INFLIXIMAB [Suspect]
     Indication: RHEUMATOID ARTHRITIS
     Route: 042
  2. AMARYL [Concomitant]
  3. CALCIUM GLUCONATE [Concomitant]
  4. FOLIC ACID [Concomitant]
  5. FOSAMAX [Concomitant]
  6. LASIX [Concomitant]
  7. LEVOXYL [Concomitant]
  8. LODINE [Concomitant]
  9. POTASSIUM [Concomitant]
     Dosage: 10 MEQ 4 TABS DAILY
  10. PREDNISONE [Concomitant]
  11. METHOTREXATE [Concomitant]
  12. ZOCOR [Concomitant]
  13. ASCORBIC ACID [Concomitant]
  14. VITAMIN E [Concomitant]

REACTIONS (1)
  - B-CELL LYMPHOMA [None]
